FAERS Safety Report 9249159 (Version 1)
Quarter: 2013Q1

REPORT INFORMATION
  Report Type: Spontaneous
  Country: US (occurrence: None)
  Receive Date: 20130305
  Receipt Date: 20130305
  Transmission Date: 20140127
  Serious: Yes (Other)
  Sender: FDA-Public Use
  Company Number: 163-21880-12060542

PATIENT
  Sex: 0

DRUGS (9)
  1. REVLIMID (LENALIDOMIDE) (CAPSULES) [Suspect]
     Indication: PLASMA CELL MYELOMA
     Dosage: 10 MG, 21 IN 21 D, PO
     Route: 048
     Dates: start: 20120425, end: 201206
  2. SOTALOL) (SOTALOL) [Concomitant]
  3. CALCIUM (CALCIUM) [Concomitant]
  4. VITAMIN D (ERGOCALCIFEROL) [Concomitant]
  5. ZPDRYHL (CHLORPHENAMINE MALEATE) [Concomitant]
  6. MELPHALAN [Concomitant]
  7. XALATAN (LATANOROST) [Concomitant]
  8. PREDNISONE (PREDNISONE) [Concomitant]
  9. PRILOSEC [Concomitant]

REACTIONS (3)
  - Skin exfoliation [None]
  - Dry skin [None]
  - Rash [None]
